FAERS Safety Report 12611011 (Version 9)
Quarter: 2020Q3

REPORT INFORMATION
  Report Type: Spontaneous
  Country: US (occurrence: US)
  Receive Date: 20160801
  Receipt Date: 20200827
  Transmission Date: 20201102
  Serious: No
  Sender: FDA-Public Use
  Company Number: US-PFIZER INC-2016362810

PATIENT
  Age: 25 Year
  Sex: Female
  Weight: 59.41 kg

DRUGS (6)
  1. DILANTIN [Suspect]
     Active Substance: PHENYTOIN
     Indication: EPILEPSY
     Dosage: 100 MG, 4X/DAY
     Route: 048
     Dates: start: 2001
  2. DILANTIN [Interacting]
     Active Substance: PHENYTOIN
     Indication: STATUS EPILEPTICUS
     Dosage: UNK
  3. FOLIC ACID. [Interacting]
     Active Substance: FOLIC ACID
     Dosage: 1 MG, 1X/DAY (1MG WAS JUST ABOVE WHAT WOMAN NORMAL VITAMIN TAKES BY MOUTH ONCE A DAY)
     Route: 048
     Dates: start: 1993, end: 1995
  4. VALIUM [Concomitant]
     Active Substance: DIAZEPAM
     Indication: SEIZURE
     Dosage: UNK
     Dates: start: 2018, end: 201910
  5. ZONEGRAN [Concomitant]
     Active Substance: ZONISAMIDE
     Indication: SEIZURE
     Dosage: UNK
  6. DILANTIN [Interacting]
     Active Substance: PHENYTOIN
     Indication: SEIZURE
     Dosage: 100 MG, 4X/DAY
     Route: 048

REACTIONS (6)
  - Drug level decreased [Recovered/Resolved]
  - Urinary tract infection [Recovered/Resolved]
  - Hypoglycaemia [Unknown]
  - Drug interaction [Recovered/Resolved]
  - Drug ineffective [Recovered/Resolved]
  - Progesterone abnormal [Recovered/Resolved]

NARRATIVE: CASE EVENT DATE: 1993
